FAERS Safety Report 10252445 (Version 1)
Quarter: 2014Q2

REPORT INFORMATION
  Report Type: Spontaneous
  Country: US (occurrence: US)
  Receive Date: 20140623
  Receipt Date: 20140623
  Transmission Date: 20141212
  Serious: Yes (Hospitalization)
  Sender: FDA-Public Use
  Company Number: US-MYLANLABS-2014S1014574

PATIENT
  Age: 66 Year
  Sex: Female

DRUGS (14)
  1. KETOROLAC [Suspect]
     Indication: ANALGESIC THERAPY
     Dosage: 30MG
     Route: 030
  2. FLUOXETINE [Interacting]
     Route: 048
  3. VITAMIN E [Interacting]
     Dosage: 50 IU DAILY IN A MULTIVITAMIN SUPPLEMENT
     Route: 065
  4. FISH OIL [Interacting]
     Dosage: 1 G DAILY
     Route: 065
  5. LEVOTHYROXINE SODIUM [Concomitant]
     Route: 065
  6. ATORVASTATIN [Concomitant]
     Route: 065
  7. SEROQUEL [Concomitant]
     Route: 065
  8. CARVEDILOL [Concomitant]
     Route: 065
  9. FERROUS SULFATE [Concomitant]
     Route: 065
  10. GABAPENTIN [Concomitant]
     Route: 065
  11. FENTANYL [Concomitant]
     Route: 065
  12. CARISOPRODOL [Concomitant]
     Route: 065
  13. OMEPRAZOLE [Concomitant]
     Route: 065
  14. METHYLPREDNISOLONE ACETATE [Concomitant]
     Indication: NECK PAIN
     Dosage: 80MG MIXED WITH 4ML PRESERVATIVE FREE NORMAL SALINE
     Route: 008

REACTIONS (3)
  - Drug interaction [Recovering/Resolving]
  - Spinal epidural haematoma [Recovering/Resolving]
  - Quadriplegia [Recovering/Resolving]
